FAERS Safety Report 12935712 (Version 1)
Quarter: 2016Q4

REPORT INFORMATION
  Report Type: Spontaneous
  Country: US (occurrence: US)
  Receive Date: 20161114
  Receipt Date: 20161114
  Transmission Date: 20170207
  Serious: No
  Sender: FDA-Public Use
  Company Number: US-TEVA-687294USA

PATIENT
  Sex: Female

DRUGS (1)
  1. LORAZEPAM. [Suspect]
     Active Substance: LORAZEPAM

REACTIONS (9)
  - Gait disturbance [Unknown]
  - Hypopnoea [Unknown]
  - Pain in extremity [Unknown]
  - Paraesthesia [Unknown]
  - Muscle spasms [Unknown]
  - Malaise [Unknown]
  - Vomiting [Recovered/Resolved]
  - Vision blurred [Unknown]
  - Back pain [Unknown]

NARRATIVE: CASE EVENT DATE: 2016
